FAERS Safety Report 9809147 (Version 1)
Quarter: 2014Q1

REPORT INFORMATION
  Report Type: Spontaneous
  Country: GB (occurrence: GB)
  Receive Date: 20140110
  Receipt Date: 20140110
  Transmission Date: 20141002
  Serious: Yes (Hospitalization)
  Sender: FDA-Public Use
  Company Number: PHFR2014GB000476

PATIENT
  Age: 64 Year
  Sex: Male
  Weight: 77 kg

DRUGS (11)
  1. ILARIS [Suspect]
     Indication: SCHNITZLER^S SYNDROME
     Dosage: 150 MG, UNK
     Route: 058
     Dates: start: 20131204, end: 20131204
  2. ILARIS [Suspect]
     Indication: OFF LABEL USE
  3. WARFARIN [Concomitant]
  4. AMLODIPINE [Concomitant]
  5. LISINOPRIL [Concomitant]
  6. METFORMIN [Concomitant]
  7. LEVOTHYROXINE [Concomitant]
  8. FLUVASTATIN [Concomitant]
  9. ALENDRONIC ACID [Concomitant]
  10. CALCICHEW [Concomitant]
  11. PREDNISOLONE [Concomitant]

REACTIONS (3)
  - Gastrointestinal inflammation [Recovering/Resolving]
  - Vomiting [Unknown]
  - Pneumonia [Recovering/Resolving]
